FAERS Safety Report 6976925-X (Version None)
Quarter: 2010Q3

REPORT INFORMATION
  Report Type: 
  Country: None (occurrence: None)
  Receive Date: 20100910
  Receipt Date: 20090506
  Transmission Date: 20110219
  Serious: No
  Sender: FDA-Public Use
  Company Number: US-WYE-H09240809

PATIENT
  Sex: Female
  Weight: 59.02 kg

DRUGS (9)
  1. PRISTIQ [Suspect]
     Indication: DEPRESSION
     Route: 048
     Dates: start: 20090401
  2. FLEXERIL [Concomitant]
  3. TRAZODONE HCL [Concomitant]
  4. TESTOSTERONE [Concomitant]
  5. LAMICTAL [Concomitant]
  6. NEXIUM [Concomitant]
  7. PROGESTERONE [Concomitant]
  8. CLONAZEPAM [Concomitant]
  9. AMITIZA [Concomitant]

REACTIONS (3)
  - HOT FLUSH [None]
  - HYPERHIDROSIS [None]
  - NIGHT SWEATS [None]
